FAERS Safety Report 25485499 (Version 1)
Quarter: 2025Q2

REPORT INFORMATION
  Report Type: Spontaneous
  Country: US (occurrence: US)
  Receive Date: 20250626
  Receipt Date: 20250626
  Transmission Date: 20250717
  Serious: No
  Sender: MYLAN
  Company Number: US-MYLANLABS-2025M1053262

PATIENT
  Sex: Male

DRUGS (4)
  1. CLONIDINE TRANSDERMAL SYSTEM [Suspect]
     Active Substance: CLONIDINE
     Indication: Blood pressure abnormal
     Dosage: 0.3 MILLIGRAM, QD (PER DAY)
  2. CLONIDINE TRANSDERMAL SYSTEM [Suspect]
     Active Substance: CLONIDINE
     Dosage: 0.3 MILLIGRAM, QD (PER DAY)
     Route: 062
  3. CLONIDINE TRANSDERMAL SYSTEM [Suspect]
     Active Substance: CLONIDINE
     Dosage: 0.3 MILLIGRAM, QD (PER DAY)
     Route: 062
  4. CLONIDINE TRANSDERMAL SYSTEM [Suspect]
     Active Substance: CLONIDINE
     Dosage: 0.3 MILLIGRAM, QD (PER DAY)

REACTIONS (2)
  - Application site rash [Unknown]
  - Product adhesion issue [Unknown]
